FAERS Safety Report 19080037 (Version 4)
Quarter: 2021Q2

REPORT INFORMATION
  Report Type: Report from Study
  Country: US (occurrence: US)
  Receive Date: 20210331
  Receipt Date: 20210619
  Transmission Date: 20210717
  Serious: Yes (Other)
  Sender: FDA-Public Use
  Company Number: NVSC2021US072917

PATIENT
  Age: 63 Year
  Sex: Male

DRUGS (1)
  1. ENTRESTO [Suspect]
     Active Substance: SACUBITRIL\VALSARTAN
     Indication: CARDIAC FAILURE CHRONIC
     Dosage: 1 DF (24/26 MG)
     Route: 065
     Dates: start: 20210316

REACTIONS (10)
  - Pain in extremity [Not Recovered/Not Resolved]
  - Sleep apnoea syndrome [Unknown]
  - Gait disturbance [Not Recovered/Not Resolved]
  - Eating disorder symptom [Unknown]
  - Hyperkeratosis [Not Recovered/Not Resolved]
  - Glycosylated haemoglobin increased [Recovering/Resolving]
  - Ejection fraction decreased [Recovering/Resolving]
  - Weight decreased [Unknown]
  - Dizziness [Unknown]
  - Discomfort [Unknown]

NARRATIVE: CASE EVENT DATE: 20210316
